FAERS Safety Report 24709218 (Version 4)
Quarter: 2025Q2

REPORT INFORMATION
  Report Type: Spontaneous
  Country: US (occurrence: US)
  Receive Date: 20241208
  Receipt Date: 20250524
  Transmission Date: 20250717
  Serious: Yes (Hospitalization, Other)
  Sender: BRISTOL-MYERS SQUIBB COMPANY
  Company Number: US-BRISTOL-MYERS SQUIBB COMPANY-2024-185868

PATIENT
  Age: 73 Year
  Sex: Female

DRUGS (1)
  1. REVLIMID [Suspect]
     Active Substance: LENALIDOMIDE
     Indication: Plasma cell myeloma
     Dosage: FREQUENCY: QD
     Route: 048

REACTIONS (8)
  - Arterial occlusive disease [Unknown]
  - COVID-19 [Recovered/Resolved]
  - Headache [Unknown]
  - Dizziness [Unknown]
  - Balance disorder [Unknown]
  - Nausea [Unknown]
  - Fatigue [Unknown]
  - Oedema peripheral [Unknown]

NARRATIVE: CASE EVENT DATE: 20240801
